FAERS Safety Report 25406727 (Version 1)
Quarter: 2025Q2

REPORT INFORMATION
  Report Type: Spontaneous
  Country: US (occurrence: US)
  Receive Date: 20250606
  Receipt Date: 20250606
  Transmission Date: 20250716
  Serious: No
  Sender: VERTEX
  Company Number: US-VERTEX PHARMACEUTICALS-2025-008991

PATIENT

DRUGS (1)
  1. TRIKAFTA [Suspect]
     Active Substance: ELEXACAFTOR\IVACAFTOR\TEZACAFTOR
     Indication: Cystic fibrosis
     Route: 048

REACTIONS (6)
  - Visual impairment [Recovered/Resolved]
  - Muscle spasms [Not Recovered/Not Resolved]
  - Dyskinesia [Unknown]
  - Sinus disorder [Unknown]
  - Blepharospasm [Not Recovered/Not Resolved]
  - Muscle twitching [Not Recovered/Not Resolved]
